FAERS Safety Report 7913550-8 (Version None)
Quarter: 2011Q4

REPORT INFORMATION
  Report Type: 
  Country: None (occurrence: None)
  Receive Date: 20111110
  Receipt Date: 20111025
  Transmission Date: 20120403
  Serious: Yes (Life-Threatening, Hospitalization)
  Sender: FDA-Public Use
  Company Number: 2011AP002493

PATIENT
  Age: 30 Year
  Sex: Female

DRUGS (3)
  1. METOPROLOL SUCCINATE [Suspect]
     Indication: PRODUCT USED FOR UNKNOWN INDICATION
  2. AMIODARONE HCL [Suspect]
     Indication: PRODUCT USED FOR UNKNOWN INDICATION
  3. CARDIZEM SR [Suspect]
     Indication: PRODUCT USED FOR UNKNOWN INDICATION

REACTIONS (6)
  - MULTIPLE DRUG OVERDOSE [None]
  - CARDIOGENIC SHOCK [None]
  - ABDOMINAL PAIN LOWER [None]
  - RENAL FAILURE [None]
  - CONFUSIONAL STATE [None]
  - BLOOD GLUCOSE INCREASED [None]
